FAERS Safety Report 9028289 (Version 1)
Quarter: 2013Q1

REPORT INFORMATION
  Report Type: Spontaneous
  Country: US (occurrence: US)
  Receive Date: 20130124
  Receipt Date: 20130124
  Transmission Date: 20140127
  Serious: No
  Sender: FDA-Public Use
  Company Number: US-PFIZER INC-2013030457

PATIENT
  Age: 41 Year
  Sex: Female
  Weight: 113 kg

DRUGS (4)
  1. PRISTIQ [Suspect]
     Indication: BIPOLAR DISORDER
     Dosage: 50 MG, DAILY
     Dates: start: 20130116
  2. PRISTIQ [Suspect]
     Indication: BIPOLAR I DISORDER
  3. ADVAIR DISKUS [Suspect]
     Indication: ASTHMA
     Dosage: FLUTICASONE: 250 MCG / SALMETEROL: 50 MCG, 2X/DAY
     Dates: start: 201209
  4. BUSPAR [Suspect]
     Indication: ANXIETY
     Dosage: 15 MG, 2X/DAY
     Dates: start: 201301

REACTIONS (4)
  - Fatigue [Recovered/Resolved]
  - Feeling abnormal [Not Recovered/Not Resolved]
  - Chest pain [Not Recovered/Not Resolved]
  - Nausea [Not Recovered/Not Resolved]
